FAERS Safety Report 5053942-0 (Version None)
Quarter: 2006Q3

REPORT INFORMATION
  Report Type: 
  Country: None (occurrence: None)
  Receive Date: 20060718
  Receipt Date: 20060612
  Transmission Date: 20061208
  Serious: Yes (Hospitalization)
  Sender: FDA-Public Use
  Company Number: US-MERCK-0606USA02287

PATIENT
  Age: 54 Year
  Sex: Female
  Weight: 68 kg

DRUGS (3)
  1. MAXALT [Suspect]
     Indication: MIGRAINE
     Route: 048
     Dates: start: 20040101, end: 20060601
  2. PREMPRO [Concomitant]
     Indication: MENOPAUSE
     Route: 048
     Dates: start: 19920101
  3. MEDROL [Concomitant]
     Indication: SCIATICA
     Route: 048

REACTIONS (2)
  - RENAL EMBOLISM [None]
  - SCIATICA [None]
